FAERS Safety Report 12285860 (Version 1)
Quarter: 2016Q2

REPORT INFORMATION
  Report Type: Spontaneous
  Country: US (occurrence: None)
  Receive Date: 20160419
  Receipt Date: 20160419
  Transmission Date: 20160815
  Serious: Yes (Hospitalization)
  Sender: FDA-Public Use
  Company Number: None

PATIENT
  Age: 45 Year
  Sex: Female
  Weight: 121.7 kg

DRUGS (2)
  1. SODIUM FERRIC GLUCONATE COMPLEX, 250 MG [Suspect]
     Active Substance: SODIUM FERRIC GLUCONATE COMPLEX
     Indication: GASTROINTESTINAL HAEMORRHAGE
     Route: 042
     Dates: start: 20160331, end: 20160331
  2. SODIUM FERRIC GLUCONATE COMPLEX, 250 MG [Suspect]
     Active Substance: SODIUM FERRIC GLUCONATE COMPLEX
     Indication: BLOOD IRON DECREASED
     Route: 042
     Dates: start: 20160331, end: 20160331

REACTIONS (3)
  - Palpitations [None]
  - Drug hypersensitivity [None]
  - Chest pain [None]

NARRATIVE: CASE EVENT DATE: 20160331
